FAERS Safety Report 9492026 (Version 1)
Quarter: 2013Q3

REPORT INFORMATION
  Report Type: Spontaneous
  Country: DK (occurrence: CH)
  Receive Date: 20130830
  Receipt Date: 20130830
  Transmission Date: 20140515
  Serious: Yes (Other)
  Sender: FDA-Public Use
  Company Number: CH-FRI-1000048332

PATIENT
  Sex: Male
  Weight: 88 kg

DRUGS (13)
  1. ESCITALOPRAM [Suspect]
     Route: 048
  2. ESCITALOPRAM [Suspect]
     Route: 048
  3. VALIUM [Suspect]
     Route: 048
     Dates: start: 201304
  4. VALIUM [Suspect]
     Dosage: 5 MG
     Route: 048
     Dates: start: 20130520, end: 20130524
  5. LITHIOFOR [Suspect]
     Route: 048
  6. LITHIOFOR [Suspect]
     Dosage: 1320 MG
     Route: 048
  7. DIPIPERON [Suspect]
     Route: 048
  8. CLOPIN ECO [Suspect]
     Dosage: 300 MG
     Route: 048
  9. PSYCHOPAX [Suspect]
     Route: 048
     Dates: start: 20130521, end: 20130524
  10. PANTOZOL [Concomitant]
     Dosage: 20 MG
     Route: 048
  11. BELLAFIT N [Concomitant]
     Dosage: 15 DROPS
     Route: 048
  12. ORFIRIL [Concomitant]
     Dosage: 2000 MG
     Route: 048
  13. FRAGMIN [Concomitant]
     Dosage: 5000 IU
     Route: 058

REACTIONS (1)
  - Depressed level of consciousness [Recovered/Resolved]
